FAERS Safety Report 7388973-9 (Version None)
Quarter: 2011Q2

REPORT INFORMATION
  Report Type: 
  Country: None (occurrence: None)
  Receive Date: 20110401
  Receipt Date: 20110330
  Transmission Date: 20111010
  Serious: Yes (Hospitalization)
  Sender: FDA-Public Use
  Company Number: US-KINGPHARMUSA00001-K201001561

PATIENT
  Sex: Male
  Weight: 78.9 kg

DRUGS (3)
  1. EMBEDA [Suspect]
     Indication: PAIN
     Dosage: 100 MG, QD
     Route: 048
     Dates: start: 20101222, end: 20101227
  2. EMBEDA [Suspect]
     Dosage: 80 MG, QD
     Dates: start: 20101216, end: 20101222
  3. EMBEDA [Suspect]
     Dosage: 60 MG, QD
     Dates: start: 20101227

REACTIONS (1)
  - CHEST PAIN [None]
